FAERS Safety Report 13260384 (Version 1)
Quarter: 2017Q1

REPORT INFORMATION
  Report Type: Spontaneous
  Country: US (occurrence: US)
  Receive Date: 20170222
  Receipt Date: 20170222
  Transmission Date: 20170428
  Serious: Yes (Other)
  Sender: FDA-Public Use
  Company Number: None

PATIENT
  Age: 93 Year
  Sex: Male
  Weight: 90.72 kg

DRUGS (6)
  1. VALIUM [Suspect]
     Active Substance: DIAZEPAM
     Indication: PAIN
     Dosage: 5MG Q6H PRN ORAL?
     Route: 048
     Dates: start: 20160306, end: 20160308
  2. RISPERIDONE. [Suspect]
     Active Substance: RISPERIDONE
     Indication: AGITATION
     Dosage: 0.25MG BID PRN ORAL
     Route: 048
     Dates: start: 20160306, end: 20160308
  3. RISPERIDONE. [Suspect]
     Active Substance: RISPERIDONE
     Indication: PAIN
     Dosage: 0.25MG BID PRN ORAL
     Route: 048
     Dates: start: 20160306, end: 20160308
  4. VALIUM [Suspect]
     Active Substance: DIAZEPAM
     Indication: AGITATION
     Dosage: 5MG Q6H PRN ORAL?
     Route: 048
     Dates: start: 20160306, end: 20160308
  5. TRAMADOL. [Suspect]
     Active Substance: TRAMADOL
     Indication: PAIN
     Dosage: 50MG Q6H PRN  ORAL
     Route: 048
     Dates: start: 20160306, end: 20160308
  6. TRAMADOL. [Suspect]
     Active Substance: TRAMADOL
     Indication: AGITATION
     Dosage: 50MG Q6H PRN  ORAL
     Route: 048
     Dates: start: 20160306, end: 20160308

REACTIONS (11)
  - Blood pressure increased [None]
  - Cellulitis [None]
  - Sepsis [None]
  - Diabetes mellitus [None]
  - Skin cancer [None]
  - International normalised ratio increased [None]
  - Pneumonia [None]
  - Pain [None]
  - Cardio-respiratory arrest [None]
  - Cardiac failure congestive [None]
  - Facial paralysis [None]

NARRATIVE: CASE EVENT DATE: 20160906
